FAERS Safety Report 5072658-8 (Version None)
Quarter: 2006Q3

REPORT INFORMATION
  Report Type: 
  Country: None (occurrence: None)
  Receive Date: 20060807
  Receipt Date: 20060731
  Transmission Date: 20061208
  Serious: Yes (Hospitalization)
  Sender: FDA-Public Use
  Company Number: SE-GLAXOSMITHKLINE-B0433189A

PATIENT
  Age: 2 Week
  Sex: Female

DRUGS (1)
  1. RETROVIR [Suspect]
     Indication: ANTIVIRAL PROPHYLAXIS
     Route: 042
     Dates: start: 20051123, end: 20060116

REACTIONS (2)
  - NECROTISING ENTEROCOLITIS NEONATAL [None]
  - SEPSIS [None]
